FAERS Safety Report 9126482 (Version 2)
Quarter: 2013Q1

REPORT INFORMATION
  Report Type: Report from Study
  Country: AU (occurrence: AU)
  Receive Date: 20130117
  Receipt Date: 20130306
  Transmission Date: 20140127
  Serious: Yes (Other)
  Sender: FDA-Public Use
  Company Number: AU-ROCHE-1178737

PATIENT
  Sex: Male

DRUGS (4)
  1. ACTEMRA [Suspect]
     Indication: RHEUMATOID ARTHRITIS
     Route: 042
     Dates: start: 20110412
  2. PREDNISOLONE [Concomitant]
     Indication: RHEUMATOID ARTHRITIS
     Route: 048
  3. SINUS TABLET [Concomitant]
     Route: 048
  4. CRESTOR [Concomitant]
     Indication: BLOOD CHOLESTEROL INCREASED

REACTIONS (7)
  - Cerebrovascular accident [Unknown]
  - Gait disturbance [Unknown]
  - Pain in extremity [Unknown]
  - Paraesthesia [Unknown]
  - Paraesthesia [Unknown]
  - Balance disorder [Unknown]
  - Paraesthesia [Unknown]
